FAERS Safety Report 5454039-8 (Version None)
Quarter: 2007Q3

REPORT INFORMATION
  Report Type: 
  Country: None (occurrence: None)
  Receive Date: 20070917
  Receipt Date: 20070228
  Transmission Date: 20080115
  Serious: Yes (Other)
  Sender: FDA-Public Use
  Company Number: US-ASTRAZENECA-2006UW07010

PATIENT
  Age: 560 Month
  Sex: Male
  Weight: 106.8 kg

DRUGS (6)
  1. SEROQUEL [Suspect]
     Indication: SCHIZOPHRENIA
     Route: 048
     Dates: start: 20010101
  2. RISPERDAL [Suspect]
     Dates: start: 20000101
  3. CLOZARIL [Concomitant]
     Dates: start: 19850101
  4. HALDOL [Concomitant]
     Dates: start: 20000101, end: 20010101
  5. THORAZINE [Concomitant]
     Dates: start: 20050101
  6. GEODON [Concomitant]

REACTIONS (4)
  - DIABETIC KETOACIDOSIS [None]
  - KETOSIS [None]
  - TYPE 2 DIABETES MELLITUS [None]
  - WEIGHT INCREASED [None]
